FAERS Safety Report 24278165 (Version 2)
Quarter: 2024Q3

REPORT INFORMATION
  Report Type: Spontaneous
  Country: IT (occurrence: IT)
  Receive Date: 20240903
  Receipt Date: 20240925
  Transmission Date: 20241017
  Serious: Yes (Other)
  Sender: NOVARTIS
  Company Number: IT-Zentiva-2024-ZT-011364

PATIENT
  Age: 49 Year
  Sex: Female

DRUGS (2)
  1. FINGOLIMOD [Suspect]
     Active Substance: FINGOLIMOD
     Indication: Relapsing-remitting multiple sclerosis
     Dosage: UNK
     Route: 065
     Dates: start: 20180403, end: 2021
  2. FINGOLIMOD [Suspect]
     Active Substance: FINGOLIMOD
     Dosage: 0.5 MG, QD (5-6 DAYS IN A WEEK)
     Route: 065
     Dates: start: 2021, end: 20230824

REACTIONS (5)
  - Leukopenia [Recovered/Resolved]
  - Lymphopenia [Recovered/Resolved]
  - Hepatic function abnormal [Recovered/Resolved]
  - Product use issue [Unknown]
  - Therapeutic product effect incomplete [Unknown]
